FAERS Safety Report 12473060 (Version 1)
Quarter: 2016Q2

REPORT INFORMATION
  Report Type: Spontaneous
  Country: US (occurrence: US)
  Receive Date: 20160616
  Receipt Date: 20160616
  Transmission Date: 20160815
  Serious: No
  Sender: FDA-Public Use
  Company Number: US-BAYER-2016-118056

PATIENT
  Age: 65 Year
  Sex: Male

DRUGS (15)
  1. PLETAL [Concomitant]
     Active Substance: CILOSTAZOL
  2. LASIX [Concomitant]
     Active Substance: FUROSEMIDE
  3. HUMALOG [Concomitant]
     Active Substance: INSULIN LISPRO
  4. MULTIVITAMIN [Concomitant]
     Active Substance: VITAMINS
  5. VITAMIN B12 [Concomitant]
     Active Substance: CYANOCOBALAMIN
  6. TOPROL XL [Concomitant]
     Active Substance: METOPROLOL SUCCINATE
  7. AVANDARYL [Concomitant]
     Active Substance: GLIMEPIRIDE\ROSIGLITAZONE MALEATE
  8. AVAPRO [Concomitant]
     Active Substance: IRBESARTAN
  9. MAGNESIUM [Concomitant]
     Active Substance: MAGNESIUM
  10. ZEMPLAR [Concomitant]
     Active Substance: PARICALCITOL
  11. NEXAVAR [Suspect]
     Active Substance: SORAFENIB
     Indication: HEPATOCELLULAR CARCINOMA
     Dosage: 200 MG, BID
     Route: 048
     Dates: start: 20160609
  12. ASPIRIN. [Concomitant]
     Active Substance: ASPIRIN
  13. VITAMIN D [Concomitant]
     Active Substance: CHOLECALCIFEROL
  14. PROTONIX [Concomitant]
     Active Substance: PANTOPRAZOLE SODIUM
  15. APIXABAN [Concomitant]
     Active Substance: APIXABAN

REACTIONS (1)
  - Rash [Recovered/Resolved]

NARRATIVE: CASE EVENT DATE: 20160613
